FAERS Safety Report 15937037 (Version 3)
Quarter: 2019Q2

REPORT INFORMATION
  Report Type: Spontaneous
  Country: US (occurrence: US)
  Receive Date: 20190208
  Receipt Date: 20190415
  Transmission Date: 20190711
  Serious: Yes (Other)
  Sender: FDA-Public Use
  Company Number: US-ASTRAZENECA-2018SF00447

PATIENT
  Age: 22121 Day
  Sex: Female
  Weight: 72.1 kg

DRUGS (38)
  1. PRILOSEC OTC [Suspect]
     Active Substance: OMEPRAZOLE MAGNESIUM
     Indication: GASTROOESOPHAGEAL REFLUX DISEASE
     Route: 048
     Dates: start: 20160217, end: 20180110
  2. PREVACID 24 HR [Suspect]
     Active Substance: LANSOPRAZOLE
     Indication: GASTROOESOPHAGEAL REFLUX DISEASE
     Route: 065
     Dates: start: 201602, end: 201811
  3. PREVACID 24 HR [Suspect]
     Active Substance: LANSOPRAZOLE
     Indication: GASTROOESOPHAGEAL REFLUX DISEASE
     Route: 065
  4. MAGNESIUM OXIDE. [Concomitant]
     Active Substance: MAGNESIUM OXIDE
  5. ZYPREXA [Concomitant]
     Active Substance: OLANZAPINE
  6. ASPIRIN. [Concomitant]
     Active Substance: ASPIRIN
  7. ALPRAZOLAM. [Concomitant]
     Active Substance: ALPRAZOLAM
  8. PRILOSEC OTC [Suspect]
     Active Substance: OMEPRAZOLE MAGNESIUM
     Indication: GASTROOESOPHAGEAL REFLUX DISEASE
     Route: 048
     Dates: start: 201602, end: 201811
  9. ELAVIL [Concomitant]
     Active Substance: AMITRIPTYLINE HYDROCHLORIDE
  10. OXYCODONE [Concomitant]
     Active Substance: OXYCODONE
  11. ZANAFLEX [Concomitant]
     Active Substance: TIZANIDINE HYDROCHLORIDE
  12. VITAMIN D3 [Concomitant]
     Active Substance: CHOLECALCIFEROL
  13. LOPERAMIDE- SIMETHICONE [Concomitant]
  14. AMITRIPTYLINE [Concomitant]
     Active Substance: AMITRIPTYLINE
  15. SYNTHROID [Concomitant]
     Active Substance: LEVOTHYROXINE SODIUM
  16. LOPERAMIDE [Concomitant]
     Active Substance: LOPERAMIDE
  17. ZOLPIDEM TARTRATE. [Concomitant]
     Active Substance: ZOLPIDEM TARTRATE
  18. HYDROCODONE-APAP [Concomitant]
     Active Substance: ACETAMINOPHEN\HYDROCODONE
  19. NEXIUM 24HR [Suspect]
     Active Substance: ESOMEPRAZOLE MAGNESIUM
     Indication: GASTROOESOPHAGEAL REFLUX DISEASE
     Route: 048
     Dates: start: 201602, end: 201811
  20. PRILOSEC OTC [Suspect]
     Active Substance: OMEPRAZOLE MAGNESIUM
     Indication: GASTROOESOPHAGEAL REFLUX DISEASE
     Route: 048
  21. PROTONIX [Suspect]
     Active Substance: PANTOPRAZOLE SODIUM
     Indication: GASTROOESOPHAGEAL REFLUX DISEASE
     Dosage: GENERIC
     Route: 048
  22. PROTONIX [Suspect]
     Active Substance: PANTOPRAZOLE SODIUM
     Indication: GASTROOESOPHAGEAL REFLUX DISEASE
     Dosage: GENERIC
     Route: 065
     Dates: start: 20180726, end: 20181119
  23. CRESTOR [Concomitant]
     Active Substance: ROSUVASTATIN CALCIUM
  24. KLOR-CON [Concomitant]
     Active Substance: POTASSIUM CHLORIDE
  25. MYRBETRIQ [Concomitant]
     Active Substance: MIRABEGRON
  26. CALCIUM CARBONATE-VITAMIN D [Concomitant]
     Active Substance: CALCIUM CARBONATE\VITAMIN D
  27. GABAPENTIN. [Concomitant]
     Active Substance: GABAPENTIN
  28. LIDOCAINE. [Concomitant]
     Active Substance: LIDOCAINE
  29. HYDROMORPHONE [Concomitant]
     Active Substance: HYDROMORPHONE
  30. NEXIUM 24HR [Suspect]
     Active Substance: ESOMEPRAZOLE MAGNESIUM
     Indication: GASTROOESOPHAGEAL REFLUX DISEASE
     Route: 048
  31. PRILOSEC [Suspect]
     Active Substance: OMEPRAZOLE MAGNESIUM
     Indication: GASTROOESOPHAGEAL REFLUX DISEASE
     Route: 048
     Dates: start: 20110217
  32. PRILOSEC [Suspect]
     Active Substance: OMEPRAZOLE MAGNESIUM
     Indication: GASTROOESOPHAGEAL REFLUX DISEASE
     Dosage: GENERIC
     Route: 065
     Dates: start: 20110217, end: 20180110
  33. ZOLOFT [Concomitant]
     Active Substance: SERTRALINE HYDROCHLORIDE
  34. PRILOSEC [Suspect]
     Active Substance: OMEPRAZOLE MAGNESIUM
     Indication: GASTROOESOPHAGEAL REFLUX DISEASE
     Route: 048
     Dates: start: 201602, end: 201811
  35. PROTONIX [Suspect]
     Active Substance: PANTOPRAZOLE SODIUM
     Indication: GASTROOESOPHAGEAL REFLUX DISEASE
     Route: 065
     Dates: start: 201602, end: 201811
  36. XANAX [Concomitant]
     Active Substance: ALPRAZOLAM
  37. ZETIA [Concomitant]
     Active Substance: EZETIMIBE
  38. MIDODRINE [Concomitant]
     Active Substance: MIDODRINE

REACTIONS (2)
  - Acute kidney injury [Unknown]
  - Chronic kidney disease [Not Recovered/Not Resolved]

NARRATIVE: CASE EVENT DATE: 20150423
